FAERS Safety Report 6471105-9 (Version None)
Quarter: 2009Q4

REPORT INFORMATION
  Report Type: 
  Country: None (occurrence: None)
  Receive Date: 20091203
  Receipt Date: 20091123
  Transmission Date: 20100525
  Serious: Yes (Other)
  Sender: FDA-Public Use
  Company Number: PHHY2009MX52374

PATIENT
  Sex: Female

DRUGS (3)
  1. EXFORGE [Suspect]
     Indication: HYPERTENSION
     Dosage: 1 TABLET (5/160MG) PER DAY
     Route: 048
     Dates: start: 20090801
  2. ACTONEL [Concomitant]
  3. RANTUDIL [Concomitant]

REACTIONS (2)
  - ANKLE FRACTURE [None]
  - FALL [None]
